FAERS Safety Report 5675949-2 (Version None)
Quarter: 2008Q1

REPORT INFORMATION
  Report Type: 
  Country: None (occurrence: None)
  Receive Date: 20080318
  Receipt Date: 20080311
  Transmission Date: 20080703
  Serious: Yes (Death)
  Sender: FDA-Public Use
  Company Number: E2020-02383-SPO-US

PATIENT
  Age: 85 Year
  Sex: Male

DRUGS (3)
  1. ARICEPT [Suspect]
     Indication: AMNESIA
     Dosage: ORAL
     Route: 048
     Dates: start: 20050401, end: 20050401
  2. EYE DROPS [Concomitant]
  3. FLOMAX [Concomitant]

REACTIONS (2)
  - DRUG INTERACTION [None]
  - SUDDEN DEATH [None]
